FAERS Safety Report 6239308-6 (Version None)
Quarter: 2009Q2

REPORT INFORMATION
  Report Type: 
  Country: None (occurrence: None)
  Receive Date: 20090622
  Receipt Date: 20090609
  Transmission Date: 20091009
  Serious: Yes (Hospitalization, Other)
  Sender: FDA-Public Use
  Company Number: PHHY2009CA07288

PATIENT
  Sex: Male

DRUGS (13)
  1. CLOZARIL [Suspect]
     Indication: BIPOLAR DISORDER
     Dosage: 25 MG, QHS
     Route: 048
     Dates: start: 20090216, end: 20090222
  2. CLOZARIL [Suspect]
     Indication: PSYCHOTIC DISORDER
  3. CLOZARIL [Suspect]
     Indication: PARKINSON'S DISEASE
  4. ZYPREXA [Concomitant]
     Dosage: 12.5 MG, QHS
  5. EPIVAL [Concomitant]
     Dosage: 1000 MG, QHS
  6. CLONAZEPAM [Concomitant]
     Dosage: 100/25 5 TIMES A DAY EVERY 3 HOURS
  7. COMTAN [Concomitant]
     Dosage: 5 TIMES A DAY EVERY 3 HOURS
  8. SINEMET [Concomitant]
     Dosage: 200/50 QHS
  9. PANTOPRAZOLE SODIUM [Concomitant]
     Dosage: 40 MG, QD
  10. LOPRESSOR [Concomitant]
     Dosage: 100 MG, BID
  11. ASAPHEN [Concomitant]
     Dosage: 80 MG, QD
  12. LIPITOR [Concomitant]
     Dosage: 20 MG, QHS
  13. CIPROFLOXACIN [Concomitant]
     Dosage: 500 MG, BID

REACTIONS (18)
  - ASOCIAL BEHAVIOUR [None]
  - AUTONOMIC NERVOUS SYSTEM IMBALANCE [None]
  - BIPOLAR DISORDER [None]
  - CONFUSIONAL STATE [None]
  - DECREASED INTEREST [None]
  - DELIRIUM [None]
  - DISORIENTATION [None]
  - LEUKOCYTOSIS [None]
  - MEMORY IMPAIRMENT [None]
  - OPPOSITIONAL DEFIANT DISORDER [None]
  - PARANOIA [None]
  - PARKINSON'S DISEASE [None]
  - PNEUMONIA ASPIRATION [None]
  - PYREXIA [None]
  - RESPIRATORY RATE [None]
  - RESPIRATORY RATE INCREASED [None]
  - URINARY INCONTINENCE [None]
  - WHITE BLOOD CELL COUNT INCREASED [None]
